FAERS Safety Report 4398569-9 (Version None)
Quarter: 2004Q3

REPORT INFORMATION
  Report Type: 
  Country: None (occurrence: None)
  Receive Date: 20040714
  Receipt Date: 20040714
  Transmission Date: 20050211
  Serious: Yes (Hospitalization)
  Sender: FDA-Public Use
  Company Number: None

PATIENT
  Age: 71 Year
  Sex: Female
  Weight: 90 kg

DRUGS (2)
  1. DUPYRIDAMOLE 51 MG [Suspect]
     Indication: SURGERY
     Dosage: 51 MG OVER 4 MINS
     Dates: start: 20040701
  2. LABETALOL HCL [Concomitant]

REACTIONS (3)
  - ATRIOVENTRICULAR BLOCK [None]
  - BRADYCARDIA [None]
  - SYNCOPE [None]
